FAERS Safety Report 26068231 (Version 1)
Quarter: 2025Q4

REPORT INFORMATION
  Report Type: Report from Study
  Country: US (occurrence: US)
  Receive Date: 20251120
  Receipt Date: 20251120
  Transmission Date: 20260118
  Serious: No
  Sender: ACADIA PHARMACEUTICALS
  Company Number: US-ACADIA PHARMACEUTICALS INC.-ACA-2025-PIM-012321

PATIENT
  Age: 81 Year
  Sex: Male

DRUGS (7)
  1. NUPLAZID [Suspect]
     Active Substance: PIMAVANSERIN TARTRATE
     Indication: Parkinson^s disease
     Dosage: 34 MILLIGRAM, QD
     Route: 048
     Dates: start: 20251018, end: 20251022
  2. CARBIDOPA\LEVODOPA [Concomitant]
     Active Substance: CARBIDOPA\LEVODOPA
  3. MIRABEGRON [Concomitant]
     Active Substance: MIRABEGRON
  4. ALENDRONATE [Concomitant]
     Active Substance: ALENDRONATE SODIUM
  5. MIRTAZAPINE [Concomitant]
     Active Substance: MIRTAZAPINE
  6. RIVASTIGMINE [Concomitant]
     Active Substance: RIVASTIGMINE
     Dosage: 24 HR
  7. TENOFOVIR [Concomitant]
     Active Substance: TENOFOVIR

REACTIONS (1)
  - Behaviour disorder [Recovered/Resolved]

NARRATIVE: CASE EVENT DATE: 20251018
